FAERS Safety Report 6086790-3 (Version None)
Quarter: 2009Q1

REPORT INFORMATION
  Report Type: 
  Country: None (occurrence: None)
  Receive Date: 20090213
  Receipt Date: 20090206
  Transmission Date: 20090719
  Serious: Yes (Hospitalization, Other)
  Sender: FDA-Public Use
  Company Number: CHPA2009US02826

PATIENT
  Age: 51 Year
  Sex: Male
  Weight: 77.1 kg

DRUGS (1)
  1. VOLTAREN [Suspect]
     Indication: TENDONITIS
     Dosage: 4 G, ONCE/SINGLE, TOPICAL
     Route: 061
     Dates: start: 20090203, end: 20090203

REACTIONS (5)
  - DIZZINESS [None]
  - FALL [None]
  - LOSS OF CONSCIOUSNESS [None]
  - MUSCLE SPASMS [None]
  - SYNCOPE [None]
